FAERS Safety Report 7205152-6 (Version None)
Quarter: 2010Q4

REPORT INFORMATION
  Report Type: 
  Country: None (occurrence: None)
  Receive Date: 20101231
  Receipt Date: 20101223
  Transmission Date: 20110411
  Serious: Yes (Hospitalization)
  Sender: FDA-Public Use
  Company Number: US-BIOGENIDEC-2010BI039265

PATIENT
  Age: 47 Year
  Sex: Female

DRUGS (4)
  1. TYSABRI [Suspect]
     Indication: MULTIPLE SCLEROSIS
     Route: 042
     Dates: start: 20070614, end: 20080811
  2. TYSABRI [Suspect]
     Route: 042
     Dates: start: 20081121, end: 20101028
  3. AMPYRA [Concomitant]
     Dates: start: 20101001
  4. ACETAMINOPHEN [Concomitant]

REACTIONS (3)
  - ACCIDENTAL OVERDOSE [None]
  - HEPATIC ENCEPHALOPATHY [None]
  - MULTIPLE SCLEROSIS RELAPSE [None]
